FAERS Safety Report 8430010-9 (Version None)
Quarter: 2012Q2

REPORT INFORMATION
  Report Type: 
  Country: None (occurrence: None)
  Receive Date: 20120612
  Receipt Date: 20120611
  Transmission Date: 20120825
  Serious: Yes (Other)
  Sender: FDA-Public Use
  Company Number: CA-PURDUE-CAN-2012-0003080

PATIENT
  Age: 59 Year
  Sex: Male

DRUGS (4)
  1. OXYCET [Concomitant]
     Indication: PAIN
     Dosage: UNK, UD
     Dates: start: 20090701
  2. OXYNEO 20 MG [Suspect]
     Indication: PAIN
     Dosage: 20 MG, UD
     Route: 048
     Dates: start: 20120301
  3. WARFARIN SODIUM [Concomitant]
     Indication: PRODUCT USED FOR UNKNOWN INDICATION
     Dosage: 3 MG, UNK
  4. PANTOPRAZOLE [Concomitant]
     Dosage: 40 MG, BID

REACTIONS (3)
  - PRURITUS GENERALISED [None]
  - JAUNDICE [None]
  - OCULAR ICTERUS [None]
